FAERS Safety Report 8885366 (Version 2)
Quarter: 2014Q3

REPORT INFORMATION
  Report Type: Report from Study
  Country: US (occurrence: US)
  Receive Date: 20121101
  Receipt Date: 20140911
  Transmission Date: 20150326
  Serious: Yes (Other)
  Sender: FDA-Public Use
  Company Number: US-ROCHE-1147633

PATIENT
  Sex: Female

DRUGS (5)
  1. RITUXAN [Suspect]
     Active Substance: RITUXIMAB
     Indication: NEUROPATHY PERIPHERAL
     Route: 042
     Dates: start: 20010123
  2. IGG [Concomitant]
     Active Substance: HUMAN IMMUNOGLOBULIN G
     Dosage: IVIG AS PAST DRUG
     Route: 065
  3. PAXIL (UNITED STATES) [Concomitant]
  4. IGG [Concomitant]
     Active Substance: HUMAN IMMUNOGLOBULIN G
     Route: 065
  5. RITUXAN [Suspect]
     Active Substance: RITUXIMAB
     Indication: DEPRESSION
     Dosage: VIAL SIZE: 100 MG
     Route: 042
     Dates: start: 20011026

REACTIONS (9)
  - Asthenia [Unknown]
  - Off label use [Unknown]
  - Headache [Unknown]
  - Hyperhidrosis [Unknown]
  - Aphasia [Unknown]
  - Muscular weakness [Unknown]
  - Muscle contractions involuntary [Unknown]
  - Nausea [Unknown]
  - Vomiting [Unknown]
